FAERS Safety Report 10167603 (Version 1)
Quarter: 2014Q2

REPORT INFORMATION
  Report Type: Spontaneous
  Country: US (occurrence: CA)
  Receive Date: 20140512
  Receipt Date: 20140512
  Transmission Date: 20141212
  Serious: Yes (Death)
  Sender: FDA-Public Use
  Company Number: CA-FRI-1000067235

PATIENT
  Age: 74 Year
  Sex: Male

DRUGS (2)
  1. ROFLUMILAST [Suspect]
     Dosage: 250 MCG
     Route: 048
     Dates: start: 20140304, end: 201403
  2. ROFLUMILAST [Suspect]
     Dosage: 500 MCG
     Route: 048
     Dates: start: 201403

REACTIONS (2)
  - Death [Fatal]
  - Inappropriate schedule of drug administration [Recovered/Resolved]
